FAERS Safety Report 8003414-6 (Version None)
Quarter: 2011Q4

REPORT INFORMATION
  Report Type: 
  Country: None (occurrence: None)
  Receive Date: 20111222
  Receipt Date: 20111219
  Transmission Date: 20120403
  Serious: Yes (Other)
  Sender: FDA-Public Use
  Company Number: TR-ABBOTT-11P-161-0884710-00

PATIENT
  Age: 36 Year
  Sex: Male
  Weight: 95 kg

DRUGS (2)
  1. INH [Concomitant]
     Indication: ANTIBIOTIC PROPHYLAXIS
     Dates: start: 20110616, end: 20110916
  2. HUMIRA [Suspect]
     Indication: ANKYLOSING SPONDYLITIS
     Route: 058
     Dates: start: 20110616, end: 20111215

REACTIONS (1)
  - LUNG DISORDER [None]
